FAERS Safety Report 20867353 (Version 1)
Quarter: 2022Q2

REPORT INFORMATION
  Report Type: Spontaneous
  Country: CA (occurrence: CA)
  Receive Date: 20220524
  Receipt Date: 20220524
  Transmission Date: 20220721
  Serious: Yes (Other)
  Sender: FDA-Public Use
  Company Number: CA-VELOXIS PHARMACEUTICALS-2022VELCA-000340

PATIENT
  Age: 60 Year
  Sex: Female

DRUGS (1)
  1. TACROLIMUS [Suspect]
     Active Substance: TACROLIMUS
     Indication: Liver transplant
     Dosage: 2 MILLIGRAM, QD
     Route: 048
     Dates: start: 20210924

REACTIONS (1)
  - Knee operation [Recovered/Resolved]

NARRATIVE: CASE EVENT DATE: 20220419
